FAERS Safety Report 4461150-7 (Version None)
Quarter: 2004Q3

REPORT INFORMATION
  Report Type: 
  Country: None (occurrence: None)
  Receive Date: 20040923
  Receipt Date: 20040909
  Transmission Date: 20050211
  Serious: Yes (Death)
  Sender: FDA-Public Use
  Company Number: KII-2001-0013361

PATIENT
  Age: 58 Year
  Sex: Male
  Weight: 68.9 kg

DRUGS (1)
  1. MORPHINE SULFATE [Suspect]
     Indication: CANCER PAIN
     Dosage: SEE TEXT
     Dates: start: 20010315

REACTIONS (1)
  - DEATH [None]
